FAERS Safety Report 20376262 (Version 2)
Quarter: 2022Q1

REPORT INFORMATION
  Report Type: Other
  Country: US (occurrence: None)
  Receive Date: 20220125
  Receipt Date: 20220129
  Transmission Date: 20220423
  Serious: No
  Sender: FDA-Public Use
  Company Number: US-ROCHE-3005605

PATIENT
  Age: 61 Year
  Sex: Female
  Weight: 74.910 kg

DRUGS (3)
  1. OCREVUS [Suspect]
     Active Substance: OCRELIZUMAB
     Indication: Multiple sclerosis
     Dosage: OTHER INFUSION DATE:09/OCT/2020, 03/MAR/2020?MOST RECENT INFUSION:14/JAN/2022
     Route: 042
     Dates: start: 201802
  2. COVID-19 VACCINE [Concomitant]
  3. MODERNA COVID-19 VACCINE [Concomitant]
     Active Substance: ELASOMERAN

REACTIONS (5)
  - COVID-19 [Not Recovered/Not Resolved]
  - SARS-CoV-2 antibody test negative [Unknown]
  - Chills [Recovered/Resolved]
  - Fatigue [Not Recovered/Not Resolved]
  - Asthenia [Not Recovered/Not Resolved]

NARRATIVE: CASE EVENT DATE: 20220114
